FAERS Safety Report 10220220 (Version 1)
Quarter: 2014Q2

REPORT INFORMATION
  Report Type: Spontaneous
  Country: CA (occurrence: CA)
  Receive Date: 20140606
  Receipt Date: 20140606
  Transmission Date: 20141212
  Serious: Yes (Other)
  Sender: FDA-Public Use
  Company Number: CA-009507513-1406CAN001744

PATIENT
  Age: 63 Year
  Sex: Male

DRUGS (1)
  1. TEMODAL [Suspect]
     Indication: MALIGNANT OLIGODENDROGLIOMA
     Dosage: UNK
     Route: 048
     Dates: start: 201208, end: 20140430

REACTIONS (2)
  - Drug ineffective [Unknown]
  - Malignant oligodendroglioma [Unknown]
